FAERS Safety Report 4417045-8 (Version None)
Quarter: 2004Q2

REPORT INFORMATION
  Report Type: 
  Country: None (occurrence: None)
  Receive Date: 20040629
  Receipt Date: 20040109
  Transmission Date: 20050107
  Serious: No
  Sender: FDA-Public Use
  Company Number: US063111

PATIENT
  Age: 3 Year
  Sex: Female

DRUGS (1)
  1. ARANESP [Suspect]
     Indication: RENAL FAILURE CHRONIC
     Dosage: 60 MCG, EVERY 2 WEEKS, SC
     Route: 058
     Dates: start: 20031001

REACTIONS (1)
  - HYPOGLYCAEMIA [None]
